FAERS Safety Report 22970445 (Version 2)
Quarter: 2023Q4

REPORT INFORMATION
  Report Type: Spontaneous
  Country: ES (occurrence: ES)
  Receive Date: 20230922
  Receipt Date: 20231130
  Transmission Date: 20240110
  Serious: Yes (Other)
  Sender: FDA-Public Use
  Company Number: ES-ASTELLAS-2023US024167

PATIENT
  Age: 83 Year
  Sex: Male

DRUGS (2)
  1. GILTERITINIB [Suspect]
     Active Substance: GILTERITINIB
     Indication: Disease recurrence
     Dosage: UNK UNK, UNKNOWN FREQ.
     Route: 065
     Dates: start: 202307
  2. GILTERITINIB [Suspect]
     Active Substance: GILTERITINIB
     Route: 065
     Dates: end: 20231011

REACTIONS (4)
  - Cytopenia [Unknown]
  - Myalgia [Unknown]
  - Disease progression [Unknown]
  - Drug ineffective [Unknown]
